FAERS Safety Report 9367682 (Version 1)
Quarter: 2013Q2

REPORT INFORMATION
  Report Type: Spontaneous
  Country: AU (occurrence: AU)
  Receive Date: 20130625
  Receipt Date: 20130625
  Transmission Date: 20140414
  Serious: Yes (Hospitalization)
  Sender: FDA-Public Use
  Company Number: AU-NOVOPROD-377774

PATIENT
  Age: 52 Year
  Sex: Female

DRUGS (2)
  1. NOVOMIX 30 FLEXPEN [Suspect]
     Indication: PRODUCT USED FOR UNKNOWN INDICATION
     Dosage: UNK, BID
     Route: 065
  2. NOVORAPID FLEXPEN [Suspect]
     Indication: PRODUCT USED FOR UNKNOWN INDICATION
     Dosage: TID WITH MEALS, SLIDING SCALE BASED ON BLOOD GLUCOSE LEVELS
     Route: 065

REACTIONS (3)
  - Peritonitis [Recovered/Resolved]
  - Hypoglycaemia [Recovered/Resolved]
  - Blood glucose abnormal [Recovered/Resolved]
